FAERS Safety Report 11492001 (Version 1)
Quarter: 2015Q3

REPORT INFORMATION
  Report Type: Spontaneous
  Country: US (occurrence: US)
  Receive Date: 20150910
  Receipt Date: 20150910
  Transmission Date: 20151125
  Serious: Yes (Death, Hospitalization, Other)
  Sender: FDA-Public Use
  Company Number: US-GLAXOSMITHKLINE-US2015129634

PATIENT
  Age: 67 Year
  Sex: Male

DRUGS (1)
  1. JALYN [Suspect]
     Active Substance: DUTASTERIDE\TAMSULOSIN HYDROCHLORIDE
     Indication: PRODUCT USED FOR UNKNOWN INDICATION
     Dosage: UNK UNK, QD
     Route: 048

REACTIONS (7)
  - Renal failure [Fatal]
  - Sepsis [Fatal]
  - Intestinal perforation [Fatal]
  - Blood pressure abnormal [Unknown]
  - Impaired healing [Unknown]
  - Skin ulcer [Fatal]
  - Multiple drug therapy [Unknown]

NARRATIVE: CASE EVENT DATE: 201506
